FAERS Safety Report 5728762-1 (Version None)
Quarter: 2008Q2

REPORT INFORMATION
  Report Type: 
  Country: None (occurrence: None)
  Receive Date: 20080506
  Receipt Date: 20080428
  Transmission Date: 20081010
  Serious: Yes (Other)
  Sender: FDA-Public Use
  Company Number: B0518476A

PATIENT
  Age: 53 Year
  Sex: Female

DRUGS (1)
  1. TRIZIVIR [Suspect]
     Indication: HIV INFECTION
     Dosage: 2TAB PER DAY
     Route: 048
     Dates: start: 20030423, end: 20070912

REACTIONS (3)
  - ABDOMINAL DISTENSION [None]
  - LIPOATROPHY [None]
  - LIPODYSTROPHY ACQUIRED [None]
